FAERS Safety Report 15875893 (Version 2)
Quarter: 2019Q1

REPORT INFORMATION
  Report Type: Report from Study
  Country: CO (occurrence: CO)
  Receive Date: 20190126
  Receipt Date: 20190201
  Transmission Date: 20190417
  Serious: Yes (Life-Threatening, Hospitalization)
  Sender: FDA-Public Use
  Company Number: PHHY2019CO017147

PATIENT
  Sex: Female

DRUGS (1)
  1. REVOLADE [Suspect]
     Active Substance: ELTROMBOPAG
     Indication: IMMUNE THROMBOCYTOPENIC PURPURA
     Dosage: 50 MG, QD
     Route: 048
     Dates: start: 20181031, end: 20181120

REACTIONS (5)
  - Anal haemorrhage [Recovered/Resolved]
  - Contusion [Unknown]
  - Apparent death [Not Recovered/Not Resolved]
  - Liver disorder [Not Recovered/Not Resolved]
  - Platelet count decreased [Unknown]
